FAERS Safety Report 20504376 (Version 1)
Quarter: 2022Q1

REPORT INFORMATION
  Report Type: Spontaneous
  Country: US (occurrence: US)
  Receive Date: 20220222
  Receipt Date: 20220222
  Transmission Date: 20220423
  Serious: No
  Sender: FDA-Public Use
  Company Number: US-ORGANON-O2202USA001527

PATIENT
  Age: 31 Year
  Sex: Female

DRUGS (4)
  1. CELESTONE SOLUSPAN [Suspect]
     Active Substance: BETAMETHASONE ACETATE\BETAMETHASONE SODIUM PHOSPHATE
     Indication: Maternal therapy to enhance foetal lung maturity
     Dosage: UNK, 2 HOURS PRIOR TO DELIVERY
  2. MAGNESIUM SULFATE [MAGNESIUM SULFATE HEPTAHYDRATE] [Concomitant]
     Indication: Tocolysis
     Dosage: UNK, 2 HOURS PRIOR TO DELIVERY
  3. AZITHROMYCIN [Concomitant]
     Active Substance: AZITHROMYCIN
     Dosage: UNK,  2 HOURS PRIOR TO DELIVERY
  4. AMPICILLIN [Concomitant]
     Active Substance: AMPICILLIN
     Dosage: UNK,  2 HOURS PRIOR TO DELIVERY

REACTIONS (1)
  - Maternal exposure during pregnancy [Recovered/Resolved]
